FAERS Safety Report 17386952 (Version 1)
Quarter: 2020Q1

REPORT INFORMATION
  Report Type: Spontaneous
  Country: UG (occurrence: UG)
  Receive Date: 20200206
  Receipt Date: 20200206
  Transmission Date: 20200409
  Serious: Yes (Hospitalization, Other)
  Sender: FDA-Public Use
  Company Number: UG-GLAXOSMITHKLINE-UG2020GSK014347

PATIENT
  Age: 10 Year
  Sex: Female

DRUGS (5)
  1. ABACAVIR. [Suspect]
     Active Substance: ABACAVIR
     Indication: HIV INFECTION
     Dosage: UNK
  2. LAMIVUDINE. [Suspect]
     Active Substance: LAMIVUDINE
     Indication: HIV INFECTION
     Dosage: UNK
  3. EFAVIRENZ. [Suspect]
     Active Substance: EFAVIRENZ
     Indication: HIV INFECTION
     Dosage: UNK
  4. LOPINAVIR+RITONAVIR [Suspect]
     Active Substance: LOPINAVIR\RITONAVIR
     Indication: HIV INFECTION
     Dosage: UNK
  5. ZIDOVUDINE. [Suspect]
     Active Substance: ZIDOVUDINE
     Indication: HIV INFECTION
     Dosage: UNK

REACTIONS (10)
  - Headache [Recovered/Resolved]
  - Generalised tonic-clonic seizure [Recovered/Resolved]
  - Pyrexia [Recovered/Resolved]
  - Vomiting [Recovered/Resolved]
  - Virologic failure [Unknown]
  - Immune reconstitution inflammatory syndrome [Recovered/Resolved]
  - Brain oedema [Recovered/Resolved]
  - Meningitis cryptococcal [Recovered/Resolved]
  - Treatment noncompliance [Unknown]
  - VIth nerve paralysis [Recovered/Resolved]
